FAERS Safety Report 6380724-X (Version None)
Quarter: 2009Q3

REPORT INFORMATION
  Report Type: 
  Country: None (occurrence: None)
  Receive Date: 20090929
  Receipt Date: 20090917
  Transmission Date: 20100115
  Serious: Yes (Hospitalization)
  Sender: FDA-Public Use
  Company Number: US-PFIZER INC-2009161682

PATIENT
  Sex: Female
  Weight: 92.063 kg

DRUGS (12)
  1. GEMCITABINE [Suspect]
     Indication: RENAL CELL CARCINOMA
     Dosage: 600 MG/M2, ON DAY1 AND DAY8
     Route: 042
     Dates: start: 20071120, end: 20081028
  2. SUNITINIB MALATE [Suspect]
     Indication: RENAL CELL CARCINOMA
     Dosage: 25 MG, DAILY, D1-14
     Route: 048
     Dates: start: 20071121, end: 20081103
  3. XANAX [Concomitant]
     Dosage: UNK
     Route: 048
     Dates: start: 20080101
  4. LIPITOR [Concomitant]
     Dosage: UNK
     Route: 048
     Dates: start: 19970101
  5. CITALOPRAM [Concomitant]
     Dosage: UNK
     Route: 048
     Dates: start: 20070401
  6. CLONIDINE [Concomitant]
     Dosage: UNK
     Route: 048
     Dates: start: 20080101
  7. IMODIUM [Concomitant]
     Dosage: UNK
     Route: 048
     Dates: start: 19970101
  8. LISINOPRIL [Concomitant]
     Dosage: UNK
     Route: 048
     Dates: start: 20071125
  9. METOPROLOL TARTRATE [Concomitant]
     Dosage: UNK
     Route: 048
     Dates: start: 20070401
  10. OMEPRAZOLE [Concomitant]
     Dosage: UNK
     Route: 048
  11. COMPAZINE [Concomitant]
     Dosage: UNK
     Route: 048
     Dates: start: 20071127
  12. HUMULIN 70/30 [Concomitant]
     Dosage: UNK
     Route: 058
     Dates: start: 19870101

REACTIONS (1)
  - PERICARDIAL EFFUSION [None]
